FAERS Safety Report 15140183 (Version 5)
Quarter: 2018Q3

REPORT INFORMATION
  Report Type: Report from Study
  Country: CO (occurrence: CO)
  Receive Date: 20180713
  Receipt Date: 20180925
  Transmission Date: 20181010
  Serious: Yes (Hospitalization)
  Sender: FDA-Public Use
  Company Number: CO-BAYER-2018-128795

PATIENT
  Age: 63 Year
  Sex: Female

DRUGS (9)
  1. TRAZODONA LAKOR [Concomitant]
     Indication: INSOMNIA
  2. BETAFERON [Suspect]
     Active Substance: INTERFERON BETA-1B
     Indication: RELAPSING-REMITTING MULTIPLE SCLEROSIS
     Dosage: 1 ML, QOD
     Route: 058
     Dates: start: 20040918, end: 201804
  3. CLONAZEPAM. [Concomitant]
     Active Substance: CLONAZEPAM
     Indication: SLEEP DISORDER
     Dosage: 30 DF, Q8HR
  4. METOPROLOL. [Concomitant]
     Active Substance: METOPROLOL
     Indication: CARDIOVASCULAR EVENT PROPHYLAXIS
  5. DEXAMETHASONE. [Concomitant]
     Active Substance: DEXAMETHASONE
     Indication: OSTEOARTHRITIS
  6. CALCIUM [Concomitant]
     Active Substance: CALCIUM
  7. VITAMIN A [Concomitant]
     Active Substance: VITAMIN A
  8. VITAMIN B COMPLEX [Concomitant]
     Active Substance: CYANOCOBALAMIN\DEXPANTHENOL\NIACINAMIDE\PYRIDOXINE HYDROCHLORIDE\RIBOFLAVIN 5^-PHOSPHATE SODIUM\THIAMINE HYDROCHLORIDE\VITAMIN B COMPLEX
     Indication: OSTEOARTHRITIS
  9. FLUOXETIN [Concomitant]
     Active Substance: FLUOXETINE HYDROCHLORIDE
     Indication: DEPRESSION

REACTIONS (15)
  - Joint swelling [Recovering/Resolving]
  - Face injury [Recovering/Resolving]
  - Ligament sprain [Recovering/Resolving]
  - Headache [Not Recovered/Not Resolved]
  - Cough [Unknown]
  - Limb injury [Recovering/Resolving]
  - Dizziness [Not Recovered/Not Resolved]
  - Product supply issue [Not Recovered/Not Resolved]
  - Incorrect drug administration duration [Not Recovered/Not Resolved]
  - Aphonia [Unknown]
  - Exostosis [Not Recovered/Not Resolved]
  - Fall [Recovering/Resolving]
  - Arthralgia [Recovering/Resolving]
  - Syncope [Recovering/Resolving]
  - Pain in extremity [Recovering/Resolving]

NARRATIVE: CASE EVENT DATE: 201804
